FAERS Safety Report 5303046-4 (Version None)
Quarter: 2007Q2

REPORT INFORMATION
  Report Type: 
  Country: None (occurrence: None)
  Receive Date: 20070420
  Receipt Date: 20070412
  Transmission Date: 20071010
  Serious: Yes (Life-Threatening, Hospitalization)
  Sender: FDA-Public Use
  Company Number: PHBS2007US06701

PATIENT
  Age: 48 Year
  Sex: Female

DRUGS (10)
  1. BACLOFEN [Suspect]
     Dosage: 10 MG TID
     Route: 048
  2. OXYBUTON [Concomitant]
  3. GABAPENTIN [Concomitant]
  4. MONTELUKAST SODIUM [Concomitant]
  5. HYDROCHLOROTHIAZIDE W/IRBESARTAN [Concomitant]
  6. ASPIRIN [Concomitant]
  7. OMEPRAZOLE [Concomitant]
  8. ATORVASTATIN CALCIUM [Concomitant]
  9. SERTRALINE [Concomitant]
  10. GLYBURIDE [Concomitant]

REACTIONS (8)
  - CEREBELLAR ATROPHY [None]
  - CEREBROVASCULAR ACCIDENT [None]
  - DRUG WITHDRAWAL SYNDROME [None]
  - GRAND MAL CONVULSION [None]
  - INTUBATION [None]
  - MOANING [None]
  - PNEUMONIA [None]
  - UNRESPONSIVE TO STIMULI [None]
